FAERS Safety Report 7347881-X (Version None)
Quarter: 2011Q1

REPORT INFORMATION
  Report Type: 
  Country: None (occurrence: None)
  Receive Date: 20110311
  Receipt Date: 20110302
  Transmission Date: 20110831
  Serious: Yes (Other)
  Sender: FDA-Public Use
  Company Number: CA-JNJFOC-20110302211

PATIENT
  Sex: Male

DRUGS (10)
  1. REMICADE [Suspect]
     Indication: COLITIS ULCERATIVE
     Route: 042
  2. ATACAND [Concomitant]
     Route: 065
  3. ISONIAZID [Concomitant]
     Route: 065
  4. VITAMIN B6 [Concomitant]
     Route: 065
  5. ALTACE [Concomitant]
     Route: 065
  6. AGGRENOX [Concomitant]
     Route: 065
  7. EZETROL [Concomitant]
     Route: 065
  8. HUMAN INSULIN [Concomitant]
     Route: 058
  9. MESALAMINE [Concomitant]
     Route: 065
  10. HYCORT ENEMA [Concomitant]
     Route: 054

REACTIONS (3)
  - PROCTOCOLITIS [None]
  - BRONCHITIS [None]
  - PROSTATIC OPERATION [None]
